FAERS Safety Report 9163128 (Version 3)
Quarter: 2013Q4

REPORT INFORMATION
  Report Type: Spontaneous
  Country: NZ (occurrence: NZ)
  Receive Date: 20130314
  Receipt Date: 20131206
  Transmission Date: 20140711
  Serious: Yes (Other)
  Sender: FDA-Public Use
  Company Number: NZ-ROCHE-1198046

PATIENT
  Sex: Female

DRUGS (12)
  1. MABTHERA [Suspect]
     Indication: RHEUMATOID ARTHRITIS
     Route: 042
     Dates: start: 20101005, end: 20101019
  2. MABTHERA [Suspect]
     Route: 042
     Dates: start: 20110405, end: 20110419
  3. MABTHERA [Suspect]
     Route: 042
     Dates: start: 20111110, end: 20111127
  4. MABTHERA [Suspect]
     Route: 042
     Dates: start: 20120423, end: 20120507
  5. MABTHERA [Suspect]
     Route: 042
     Dates: start: 20130508, end: 20130522
  6. ARAVA [Concomitant]
     Indication: RHEUMATOID ARTHRITIS
     Route: 065
     Dates: start: 20111108, end: 20111122
  7. ARAVA [Concomitant]
     Route: 065
     Dates: start: 20120801, end: 20120815
  8. ARAVA [Concomitant]
     Route: 065
     Dates: start: 20131017, end: 20131031
  9. METHOTREXATE [Concomitant]
     Indication: RHEUMATOID ARTHRITIS
     Route: 065
     Dates: start: 20120404, end: 20120418
  10. METHOTREXATE [Concomitant]
     Route: 065
     Dates: start: 20121105, end: 20121119
  11. METHOTREXATE [Concomitant]
     Route: 065
     Dates: start: 20130528, end: 20130612
  12. HYDROXYCHLOROQUINE [Concomitant]
     Indication: RHEUMATOID ARTHRITIS

REACTIONS (1)
  - Ankle operation [Unknown]
